FAERS Safety Report 26072081 (Version 2)
Quarter: 2025Q4

REPORT INFORMATION
  Report Type: Spontaneous
  Country: BR (occurrence: BR)
  Receive Date: 20251120
  Receipt Date: 20251204
  Transmission Date: 20260117
  Serious: Yes (Other)
  Sender: MERCK SHARP & DOHME LLC
  Company Number: BR-009507513-2350740

PATIENT
  Age: 52 Year
  Sex: Female

DRUGS (3)
  1. METFORMIN HYDROCHLORIDE\SITAGLIPTIN PHOSPHATE [Suspect]
     Active Substance: METFORMIN HYDROCHLORIDE\SITAGLIPTIN PHOSPHATE
     Indication: Diabetes mellitus
     Dosage: 02 CAP, 1 TABLET BEFORE LUNCH AND 1 TABLET BEFORE DINNER
     Route: 048
     Dates: start: 2022
  2. JARDIANSE [Concomitant]
     Indication: Diabetes mellitus
     Dosage: IN THE MORNING ON AN EMPTY STOMACH
     Route: 048
     Dates: start: 2022
  3. PURAN [Concomitant]
     Active Substance: LEVOTHYROXINE SODIUM
     Indication: Thyroid disorder
     Dosage: TIME INTERVAL: TOTAL
     Route: 048
     Dates: start: 2022

REACTIONS (1)
  - Diabetes mellitus inadequate control [Not Recovered/Not Resolved]
